FAERS Safety Report 10405223 (Version 1)
Quarter: 2014Q3

REPORT INFORMATION
  Report Type: Report from Study
  Country: KR (occurrence: KR)
  Receive Date: 20140825
  Receipt Date: 20140825
  Transmission Date: 20150326
  Serious: No
  Sender: FDA-Public Use
  Company Number: PHHY2014KR104637

PATIENT
  Age: 72 Year
  Sex: Male

DRUGS (40)
  1. LEVOCETIRIZINE HYDROCHLORIDE [Concomitant]
     Active Substance: LEVOCETIRIZINE HYDROCHLORIDE
     Indication: RASH
     Dosage: 5 MG, PER DAY
     Route: 048
     Dates: start: 20140516, end: 20140530
  2. HYDROXYZINE HYDROCHLORIDE. [Concomitant]
     Active Substance: HYDROXYZINE HYDROCHLORIDE
     Indication: RASH
     Dosage: 10 MG, PER DAY
     Route: 048
     Dates: start: 20140516, end: 20140721
  3. LANTUS [Concomitant]
     Active Substance: INSULIN GLARGINE
     Indication: DIABETES MELLITUS MANAGEMENT
     Dosage: 8 IU, UNK
     Route: 058
     Dates: start: 20140405, end: 20140406
  4. LANTUS [Concomitant]
     Active Substance: INSULIN GLARGINE
     Dosage: 10 IU, UNK
     Route: 058
     Dates: start: 20140407, end: 20140407
  5. NOVORAPID [Concomitant]
     Active Substance: INSULIN ASPART
     Indication: DIABETES MELLITUS MANAGEMENT
     Dosage: 6 IU, UNK
     Route: 058
     Dates: start: 20140405, end: 20140405
  6. PROPOFOL. [Concomitant]
     Active Substance: PROPOFOL
     Indication: COLONOSCOPY
     Dosage: 110 MG, UNK
     Route: 042
     Dates: start: 20140708, end: 20140708
  7. SODIUM CHLORIDE. [Concomitant]
     Active Substance: SODIUM CHLORIDE
     Indication: INFUSION
     Dosage: 500 ML, UNK
     Route: 042
     Dates: start: 20140707, end: 20140711
  8. TALNIFLUMATE [Concomitant]
     Active Substance: TALNIFLUMATE
     Indication: ANALGESIC THERAPY
     Dosage: 1110 MG, UNK
     Route: 048
     Dates: start: 20140625, end: 20140701
  9. VILDAGLIPTIN [Concomitant]
     Active Substance: VILDAGLIPTIN
     Indication: DIABETES MELLITUS MANAGEMENT
     Dosage: 50 MG, UNK
     Route: 048
     Dates: start: 20140409
  10. TYLENOL ER [Concomitant]
     Active Substance: ACETAMINOPHEN
     Indication: PYREXIA
     Dosage: 650 MG, PER DAY
     Route: 048
     Dates: start: 20140403, end: 20140403
  11. ERDOSTEINE [Concomitant]
     Active Substance: ERDOSTEINE
     Indication: PLEURAL EFFUSION
     Dosage: 600 MG, PER DAY
     Route: 048
     Dates: start: 20140325
  12. FUROSEMIDE. [Concomitant]
     Active Substance: FUROSEMIDE
     Indication: PROPHYLAXIS
     Dosage: 40 MG, UNK
     Route: 048
     Dates: start: 20140710, end: 20140714
  13. AMOXICILLIN. [Concomitant]
     Active Substance: AMOXICILLIN
     Indication: ANTIBIOTIC PROPHYLAXIS
     Dosage: 1875 MG, UNK
     Route: 048
     Dates: start: 20140625, end: 20140701
  14. EPINASTINE [Concomitant]
     Active Substance: EPINASTINE
     Indication: RASH
     Dosage: 20 MG, UNK
     Route: 048
     Dates: start: 20140516, end: 20140530
  15. BEPOTASTINE [Concomitant]
     Active Substance: BEPOTASTINE
     Indication: PRURITUS GENERALISED
     Dosage: 20 MG, PER DAY
     Route: 048
     Dates: start: 20120903, end: 20140516
  16. ACETYLCYSTEINE. [Concomitant]
     Active Substance: ACETYLCYSTEINE
     Indication: NEPHROPATHY TOXIC
     Dosage: 600 MG, PER DAY
     Route: 048
     Dates: start: 20140204, end: 20140415
  17. DUO CLINDACIN [Concomitant]
     Indication: RASH
     Dosage: 1 UNK, UNK
     Dates: start: 20140530, end: 20140620
  18. LANTUS [Concomitant]
     Active Substance: INSULIN GLARGINE
     Dosage: 14 IU, UNK
     Route: 058
     Dates: start: 20140408, end: 20140408
  19. ALLOPURINOL. [Concomitant]
     Active Substance: ALLOPURINOL
     Indication: TUMOUR LYSIS SYNDROME
     Dosage: 100 MG, PER DAY
     Route: 048
     Dates: start: 20140403, end: 20140415
  20. FUROSEMIDE. [Concomitant]
     Active Substance: FUROSEMIDE
     Indication: PLEURAL EFFUSION
     Dosage: 80 MG, UNK
     Route: 048
     Dates: start: 20140410, end: 20140502
  21. FUROSEMIDE. [Concomitant]
     Active Substance: FUROSEMIDE
     Indication: DIURETIC THERAPY
     Dosage: 40 MG, UNK
     Route: 048
     Dates: start: 20140502, end: 20140530
  22. GLICLAZIDE [Concomitant]
     Active Substance: GLICLAZIDE
     Indication: DIABETES MELLITUS MANAGEMENT
     Dosage: 30 MG, UNK
     Route: 048
     Dates: start: 20140409
  23. LACTICARE ZEMAGIS [Concomitant]
     Indication: RASH
     Dosage: 2 UNK, UNK
     Route: 061
     Dates: start: 20140502, end: 20140516
  24. PETHIDINE HYDROCHLORIDE [Concomitant]
     Active Substance: MEPERIDINE
     Indication: ASPIRATION PLEURAL CAVITY
     Dosage: 25 MG, UNK
     Route: 030
     Dates: start: 20140402, end: 20140402
  25. FUROSEMIDE. [Concomitant]
     Active Substance: FUROSEMIDE
     Indication: PLEURAL EFFUSION
     Dosage: 80 MG, PER DAY
     Route: 048
     Dates: start: 20140325, end: 20140408
  26. FUROSEMIDE. [Concomitant]
     Active Substance: FUROSEMIDE
     Dosage: 20 MG, UNK
     Route: 048
     Dates: start: 20140530, end: 20140614
  27. MEQUITAZINE [Concomitant]
     Active Substance: MEQUITAZINE
     Indication: PRURITUS GENERALISED
     Dosage: 10 MG, PER DAY
     Route: 048
     Dates: start: 20130715, end: 20140516
  28. ACETYLCYSTEINE. [Concomitant]
     Active Substance: ACETYLCYSTEINE
     Dosage: 1200 MG, PER DAY
     Route: 048
     Dates: start: 20140709, end: 20140713
  29. COLYTE                             /00751601/ [Concomitant]
     Indication: COLONOSCOPY
     Dosage: 4 L, UNK
     Route: 048
     Dates: start: 20140707, end: 20140708
  30. STILLEN [Concomitant]
     Indication: ANTACID THERAPY
     Dosage: 180 MG, UNK
     Route: 048
     Dates: start: 20140625, end: 20140701
  31. AMN107 [Suspect]
     Active Substance: NILOTINIB
     Indication: CHRONIC MYELOID LEUKAEMIA
     Dosage: 800 MG, PER DAY
     Route: 048
     Dates: start: 20140402
  32. ETIZOLAM [Concomitant]
     Active Substance: ETIZOLAM
     Indication: ANXIETY
     Dosage: 0.5 MG, PER DAY
     Route: 048
     Dates: start: 20130819
  33. APIDRA [Concomitant]
     Active Substance: INSULIN GLULISINE
     Dosage: 24 IU, UNK
     Dates: start: 20140408, end: 20140408
  34. MIDAZOLAM [Concomitant]
     Active Substance: MIDAZOLAM\MIDAZOLAM HYDROCHLORIDE
     Indication: COLONOSCOPY
     Dosage: 3 MG, UNK
     Route: 042
     Dates: start: 20140708, end: 20140708
  35. PROPACETAMOL HYDROCHLORIDE [Concomitant]
     Active Substance: PROPACETAMOL HYDROCHLORIDE
     Indication: PYREXIA
     Dosage: 1 G, UNK
     Route: 042
     Dates: start: 20140404, end: 20140405
  36. CEFTRIAXONE SODIUM. [Concomitant]
     Active Substance: CEFTRIAXONE SODIUM
     Indication: PYREXIA
     Dosage: 2 G, PER DAY
     Route: 042
     Dates: start: 20140403, end: 20140410
  37. APIDRA [Concomitant]
     Active Substance: INSULIN GLULISINE
     Indication: DIABETES MELLITUS MANAGEMENT
     Dosage: 18 IU, UNK
     Route: 058
     Dates: start: 20140406, end: 20140407
  38. DESOWEN [Concomitant]
     Active Substance: DESONIDE
     Indication: RASH
     Dosage: 3 UNK, UNK
     Route: 061
     Dates: start: 20140516
  39. PETHIDINE HYDROCHLORIDE [Concomitant]
     Active Substance: MEPERIDINE
     Indication: PAIN
  40. RANITIDINE BISMUTH CITRATE [Concomitant]
     Active Substance: RANITIDINE BISMUTH CITRATE
     Indication: ANTACID THERAPY
     Dosage: 300 MG, UNK
     Route: 048
     Dates: start: 20120130

REACTIONS (3)
  - Hypocalcaemia [Recovered/Resolved]
  - Hypokalaemia [Recovered/Resolved]
  - Hypophosphataemia [Recovered/Resolved]

NARRATIVE: CASE EVENT DATE: 20140409
